FAERS Safety Report 4996724-8 (Version None)
Quarter: 2006Q2

REPORT INFORMATION
  Report Type: 
  Country: None (occurrence: None)
  Receive Date: 20060509
  Receipt Date: 20050714
  Transmission Date: 20061013
  Serious: Yes (Hospitalization)
  Sender: FDA-Public Use
  Company Number: US-MERCK-0507USA02097

PATIENT
  Age: 59 Year
  Sex: Male
  Weight: 133 kg

DRUGS (8)
  1. VIOXX [Suspect]
     Indication: ARTHRITIS
     Route: 048
     Dates: start: 19990401, end: 20040818
  2. AVANDIA [Concomitant]
     Route: 065
  3. ACCUPRIL [Concomitant]
     Route: 065
  4. CELEBREX [Suspect]
     Route: 065
  5. LANOXIN [Concomitant]
     Route: 065
  6. LOPID [Concomitant]
     Route: 065
  7. GLUCOVANCE [Concomitant]
     Route: 065
  8. TYLENOL (CAPLET) [Concomitant]
     Indication: ANALGESIC EFFECT
     Route: 065

REACTIONS (12)
  - ACCIDENTAL OVERDOSE [None]
  - ANGINA UNSTABLE [None]
  - ARTHROPATHY [None]
  - ATRIAL FIBRILLATION [None]
  - ATRIAL FLUTTER [None]
  - CARDIAC FAILURE CONGESTIVE [None]
  - COAGULATION TIME PROLONGED [None]
  - CORONARY ARTERY DISEASE [None]
  - ENDOMETRIAL HYPERPLASIA [None]
  - POLLAKIURIA [None]
  - PRESCRIBED OVERDOSE [None]
  - SHOULDER PAIN [None]
